FAERS Safety Report 9893972 (Version 1)
Quarter: 2014Q1

REPORT INFORMATION
  Report Type: Spontaneous
  Country: US (occurrence: US)
  Receive Date: 20140213
  Receipt Date: 20140213
  Transmission Date: 20141002
  Serious: Yes (Other)
  Sender: FDA-Public Use
  Company Number: US-PFIZER INC-2014041223

PATIENT
  Age: 28 Year
  Sex: Male
  Weight: 83.9 kg

DRUGS (2)
  1. LYRICA [Suspect]
     Indication: CONVULSION
     Dosage: 300 MG, 2X/DAY
  2. VIMPAT [Concomitant]
     Indication: PARTIAL SEIZURES
     Dosage: 300 MG, 2X/DAY

REACTIONS (1)
  - Drug ineffective [Unknown]
